FAERS Safety Report 4383208-3 (Version None)
Quarter: 2004Q2

REPORT INFORMATION
  Report Type: 
  Country: None (occurrence: None)
  Receive Date: 20040618
  Receipt Date: 20040601
  Transmission Date: 20050107
  Serious: Yes (Hospitalization, Other)
  Sender: FDA-Public Use
  Company Number: USA040668863

PATIENT
  Age: 57 Year
  Sex: Female

DRUGS (1)
  1. HUMULIN 70/30 [Suspect]
     Indication: DIABETES MELLITUS
     Dosage: 76 U DAY
     Dates: start: 19890101

REACTIONS (8)
  - BACK PAIN [None]
  - BLOOD GLUCOSE DECREASED [None]
  - DIFFICULTY IN WALKING [None]
  - MARKEDLY REDUCED DIETARY INTAKE [None]
  - PAIN EXACERBATED [None]
  - POST PROCEDURAL COMPLICATION [None]
  - QUADRUPLE VESSEL BYPASS GRAFT [None]
  - WEIGHT DECREASED [None]
